FAERS Safety Report 13414749 (Version 1)
Quarter: 2017Q2

REPORT INFORMATION
  Report Type: Spontaneous
  Country: JP (occurrence: JP)
  Receive Date: 20170406
  Receipt Date: 20170406
  Transmission Date: 20170830
  Serious: Yes (Other)
  Sender: FDA-Public Use
  Company Number: JP-ASTRAZENECA-2015SF12725

PATIENT
  Age: 75 Year
  Sex: Male

DRUGS (3)
  1. WARFARIN [Concomitant]
     Active Substance: WARFARIN
  2. CASODEX [Suspect]
     Active Substance: BICALUTAMIDE
     Indication: PROSTATE CANCER
     Route: 048
     Dates: start: 20151107, end: 20160308
  3. ZOLADEX [Suspect]
     Active Substance: GOSERELIN ACETATE
     Indication: PROSTATE CANCER
     Dosage: 3.6MG UNKNOWN
     Route: 058
     Dates: start: 2015

REACTIONS (16)
  - Body temperature decreased [Unknown]
  - Fatigue [Recovering/Resolving]
  - Malaise [Unknown]
  - Palpitations [Unknown]
  - Low density lipoprotein increased [Recovering/Resolving]
  - Hot flush [Unknown]
  - Pruritus [Recovering/Resolving]
  - Gait disturbance [Unknown]
  - Testicular atrophy [Unknown]
  - Prostatic specific antigen abnormal [Unknown]
  - Pollakiuria [Unknown]
  - Dyspnoea [Unknown]
  - Hyperhidrosis [Unknown]
  - Heart rate decreased [Unknown]
  - Pain [Unknown]
  - Arthralgia [Not Recovered/Not Resolved]

NARRATIVE: CASE EVENT DATE: 201511
